FAERS Safety Report 4510511-6 (Version None)
Quarter: 2004Q4

REPORT INFORMATION
  Report Type: 
  Country: None (occurrence: None)
  Receive Date: 20041005
  Receipt Date: 20040826
  Transmission Date: 20050328
  Serious: No
  Sender: FDA-Public Use
  Company Number: SU-2004-002632

PATIENT
  Age: 55 Year
  Sex: Female
  Weight: 99.7913 kg

DRUGS (8)
  1. BENICAR HCT [Suspect]
     Indication: HYPERTENSION
     Dosage: 40.25 MG QD PO
     Route: 048
     Dates: start: 20040821
  2. AVANDIA [Concomitant]
  3. TOPROL-XL [Concomitant]
  4. PREMARIN [Concomitant]
  5. XANAX [Concomitant]
  6. PRILOSEC [Concomitant]
  7. ALLEGRA [Concomitant]
  8. ULTRACET [Concomitant]

REACTIONS (4)
  - BLOOD GLUCOSE DECREASED [None]
  - CHEST DISCOMFORT [None]
  - DIARRHOEA [None]
  - GASTROINTESTINAL PAIN [None]
